FAERS Safety Report 9705157 (Version 10)
Quarter: 2014Q2

REPORT INFORMATION
  Report Type: Report from Study
  Country: DE (occurrence: DE)
  Receive Date: 20131122
  Receipt Date: 20140602
  Transmission Date: 20141212
  Serious: Yes (Hospitalization)
  Sender: FDA-Public Use
  Company Number: DE-AMGEN-DEUCT2013081868

PATIENT
  Age: 47 Year
  Sex: Female
  Weight: 71 kg

DRUGS (4)
  1. ETANERCEPT [Suspect]
     Indication: ANKYLOSING SPONDYLITIS
     Dosage: 50 MG, QWK
     Route: 065
     Dates: start: 20130109, end: 20130213
  2. ETANERCEPT [Suspect]
     Dosage: 50 MG, WEEKLY
     Route: 065
     Dates: start: 20130215, end: 20130831
  3. CELEBREX [Concomitant]
     Dosage: 200 MG, 1X/DAY
     Route: 048
     Dates: start: 201307
  4. MOBEC [Concomitant]
     Indication: ANKYLOSING SPONDYLITIS
     Dosage: 15 MG, 1X/DAY
     Route: 048
     Dates: start: 201211, end: 20130110

REACTIONS (1)
  - Goitre [Recovered/Resolved with Sequelae]
